FAERS Safety Report 9889432 (Version 1)
Quarter: 2014Q1

REPORT INFORMATION
  Report Type: Spontaneous
  Country: ES (occurrence: ES)
  Receive Date: 20140211
  Receipt Date: 20140211
  Transmission Date: 20141002
  Serious: Yes (Death)
  Sender: FDA-Public Use
  Company Number: PHHY2014ES013144

PATIENT
  Age: 77 Year
  Sex: Female

DRUGS (7)
  1. NITRODERM MATRIX [Suspect]
     Dosage: 10 MG, PER 24 HOUR
     Route: 062
     Dates: start: 20131115, end: 20131130
  2. PANTOPRAZOLE [Suspect]
     Dosage: 40 MG, QD
     Route: 048
     Dates: start: 20131115, end: 20131120
  3. RIFAMPICIN [Suspect]
     Dosage: 300 MG, BID
     Route: 048
     Dates: start: 20131122, end: 20131124
  4. FUROSEMIDE [Suspect]
     Dosage: 40 MG, QD
     Dates: start: 20131115
  5. CIPROFLOXACIN [Suspect]
     Dosage: 400 MG, BID
     Route: 042
     Dates: start: 20131115, end: 20131122
  6. VANCOMYCIN [Suspect]
     Indication: ENDOCARDITIS
     Dosage: 1 G, UNK
     Route: 042
     Dates: start: 20131115, end: 20131126
  7. GENTAMYCIN [Suspect]
     Dosage: 60 MG, TID
     Route: 042
     Dates: start: 20131115, end: 20131126

REACTIONS (2)
  - Cardiac failure [Fatal]
  - Linear IgA disease [Unknown]
